FAERS Safety Report 8137854-1 (Version None)
Quarter: 2012Q1

REPORT INFORMATION
  Report Type: 
  Country: None (occurrence: None)
  Receive Date: 20120215
  Receipt Date: 20120206
  Transmission Date: 20120608
  Serious: Yes (Other)
  Sender: FDA-Public Use
  Company Number: CA-BRISTOL-MYERS SQUIBB COMPANY-16386328

PATIENT
  Age: 56 Year
  Sex: Male

DRUGS (5)
  1. RAMIPRIL [Concomitant]
  2. METHOTREXATE [Concomitant]
  3. LEFLUNOMIDE [Concomitant]
  4. NAPROXEN [Concomitant]
  5. ORENCIA [Suspect]
     Route: 042

REACTIONS (1)
  - RETINOPATHY [None]
